FAERS Safety Report 25842858 (Version 1)
Quarter: 2025Q3

REPORT INFORMATION
  Report Type: Spontaneous
  Country: CN (occurrence: CN)
  Receive Date: 20250924
  Receipt Date: 20250924
  Transmission Date: 20251021
  Serious: Yes (Hospitalization)
  Sender: ORGANON
  Company Number: CN-ORGANON-O2509CHN001953

PATIENT
  Age: 85 Year
  Sex: Female
  Weight: 30 kg

DRUGS (3)
  1. SINGULAIR [Suspect]
     Active Substance: MONTELUKAST SODIUM
     Indication: Wheezing
     Dosage: 1 TABLET, QN, ORALLY
     Route: 048
     Dates: start: 20250827, end: 20250828
  2. SINGULAIR [Suspect]
     Active Substance: MONTELUKAST SODIUM
     Indication: Bronchospasm
  3. FUROSEMIDE [Concomitant]
     Active Substance: FUROSEMIDE
     Indication: Asthma
     Dosage: 2ML, QD, INTRAVENOUS INJECTION
     Route: 048
     Dates: start: 20250827, end: 20250827

REACTIONS (3)
  - Hypersensitivity [Recovering/Resolving]
  - Drug eruption [Recovering/Resolving]
  - Pruritus [Recovering/Resolving]

NARRATIVE: CASE EVENT DATE: 20250828
